FAERS Safety Report 7686237-7 (Version None)
Quarter: 2011Q3

REPORT INFORMATION
  Report Type: 
  Country: None (occurrence: None)
  Receive Date: 20110816
  Receipt Date: 20110809
  Transmission Date: 20111222
  Serious: Yes (Other)
  Sender: FDA-Public Use
  Company Number: DE-SANOFI-AVENTIS-2010SA056445

PATIENT
  Age: 49 Year
  Sex: Female

DRUGS (8)
  1. OXALIPLATIN [Suspect]
     Route: 042
     Dates: start: 20100823
  2. PANTOPRAZOLE [Concomitant]
  3. SODIUM SELENITE [Concomitant]
  4. OXALIPLATIN [Suspect]
     Route: 042
  5. XELODA [Suspect]
     Route: 048
  6. XELODA [Suspect]
     Route: 048
     Dates: start: 20100803
  7. XELODA [Suspect]
     Route: 048
  8. OXALIPLATIN [Suspect]
     Route: 042

REACTIONS (4)
  - PARAESTHESIA [None]
  - HYPERLIPASAEMIA [None]
  - ABDOMINAL PAIN LOWER [None]
  - NAUSEA [None]
